FAERS Safety Report 10525407 (Version 2)
Quarter: 2014Q4

REPORT INFORMATION
  Report Type: Spontaneous
  Country: KR (occurrence: None)
  Receive Date: 20141015
  Receipt Date: 20141030
  Transmission Date: 20150528
  Serious: Yes (Hospitalization)
  Sender: FDA-Public Use
  Company Number: B1036149A

PATIENT
  Age: 17 Year
  Sex: Female
  Weight: 55 kg

DRUGS (2)
  1. PAXIL [Suspect]
     Active Substance: PAROXETINE HYDROCHLORIDE
     Indication: DEPRESSION
     Dosage: 12.5MG.
     Dates: start: 20140911, end: 20140911
  2. PAXIL [Suspect]
     Active Substance: PAROXETINE HYDROCHLORIDE
     Indication: INSOMNIA
     Dosage: 12.5MG.
     Dates: start: 20140911, end: 20140911

REACTIONS (17)
  - Headache [None]
  - Pain [None]
  - Dyskinesia [None]
  - Abdominal pain upper [None]
  - Insomnia [None]
  - Nausea [None]
  - Mental disorder [None]
  - Tremor [None]
  - Overdose [None]
  - Off label use [None]
  - Hepatitis acute [None]
  - Asthenia [None]
  - Suicidal ideation [None]
  - Tic [None]
  - Yawning [None]
  - Retching [None]
  - Somnolence [None]

NARRATIVE: CASE EVENT DATE: 20140911
